FAERS Safety Report 9841309 (Version 1)
Quarter: 2013Q4

REPORT INFORMATION
  Report Type: Spontaneous
  Country: US (occurrence: None)
  Receive Date: 20131223
  Receipt Date: 20131223
  Transmission Date: 20140711
  Serious: No
  Sender: FDA-Public Use
  Company Number: 222273LEO

PATIENT
  Sex: Female

DRUGS (2)
  1. PICATO [Suspect]
     Indication: BASAL CELL CARCINOMA
     Dosage: 1 DF (ONCE DAILY THIS WAS FIRST APPLICATION), TOPICAL
     Route: 061
     Dates: start: 20130609, end: 20130609
  2. YAZ (DROSPIRENONE W/ETHINYLESTRADIOL) [Concomitant]

REACTIONS (5)
  - Eye irritation [None]
  - Ocular hyperaemia [None]
  - Application site pain [None]
  - Application site erythema [None]
  - Off label use [None]
